FAERS Safety Report 7002394-X (Version None)
Quarter: 2010Q3

REPORT INFORMATION
  Report Type: 
  Country: None (occurrence: None)
  Receive Date: 20100920
  Receipt Date: 20070614
  Transmission Date: 20110219
  Serious: Yes (Other)
  Sender: FDA-Public Use
  Company Number: US-ASTRAZENECA-2006UW23591

PATIENT
  Age: 38 Year
  Sex: Female
  Weight: 126.6 kg

DRUGS (20)
  1. SEROQUEL [Suspect]
     Indication: DEPRESSION
     Route: 048
     Dates: start: 20030101, end: 20060101
  2. SEROQUEL [Suspect]
     Dosage: 100 MG TO 300 MG
     Route: 048
     Dates: start: 20041206
  3. HALDOL [Concomitant]
  4. LEXAPRO [Concomitant]
     Route: 048
     Dates: start: 20041206
  5. XANAX [Concomitant]
     Route: 048
     Dates: start: 20070514
  6. EFFEXOR [Concomitant]
     Route: 048
     Dates: start: 20060124
  7. ACCUPRIL [Concomitant]
     Route: 048
     Dates: start: 20041206
  8. FUROSEMIDE [Concomitant]
     Route: 048
     Dates: start: 20041206
  9. ALPRAZOLAM [Concomitant]
     Dosage: 1 MG 4 TO 6 TABLET DAILY
     Route: 048
     Dates: start: 20041230
  10. PREVACID [Concomitant]
     Route: 048
     Dates: start: 20050303
  11. TYLENOL [Concomitant]
     Route: 048
     Dates: start: 20070514
  12. AMBIEN [Concomitant]
     Indication: INSOMNIA
     Route: 048
     Dates: start: 20070514
  13. PHENERGAN [Concomitant]
     Indication: NAUSEA
     Route: 048
     Dates: start: 20070514
  14. NITROGLYCERIN [Concomitant]
     Indication: ANGINA PECTORIS
     Route: 048
     Dates: start: 20070514
  15. NEXIUM [Concomitant]
     Route: 048
     Dates: start: 20070514
  16. ALTACE [Concomitant]
     Route: 048
     Dates: start: 20070514
  17. ATROPINE [Concomitant]
     Route: 048
     Dates: start: 20070514
  18. METFORMIN [Concomitant]
     Route: 048
     Dates: start: 20071031
  19. GEODON [Concomitant]
     Indication: BIPOLAR DISORDER
     Route: 048
     Dates: start: 20071031
  20. POTASSIUM [Concomitant]
     Route: 048
     Dates: start: 20071031

REACTIONS (6)
  - BLOOD CHOLESTEROL INCREASED [None]
  - BLOOD TRIGLYCERIDES INCREASED [None]
  - DIABETES MELLITUS [None]
  - DIABETES MELLITUS INADEQUATE CONTROL [None]
  - HYPERGLYCAEMIA [None]
  - TYPE 2 DIABETES MELLITUS [None]
